FAERS Safety Report 14660361 (Version 4)
Quarter: 2021Q3

REPORT INFORMATION
  Report Type: Report from Study
  Country: US (occurrence: US)
  Receive Date: 20180320
  Receipt Date: 20210831
  Transmission Date: 20211014
  Serious: Yes (Other)
  Sender: FDA-Public Use
  Company Number: PHEH2018US009336

PATIENT
  Sex: Male
  Weight: 86.17 kg

DRUGS (7)
  1. LOSARTAN. [Concomitant]
     Active Substance: LOSARTAN
     Indication: HYPERTENSION
     Dosage: UNK
     Route: 065
  2. HYDROCHLOROTHIAZIDE. [Concomitant]
     Active Substance: HYDROCHLOROTHIAZIDE
     Indication: PRODUCT USED FOR UNKNOWN INDICATION
     Dosage: UNK
     Route: 065
  3. COSENTYX [Suspect]
     Active Substance: SECUKINUMAB
     Indication: PRODUCT USED FOR UNKNOWN INDICATION
     Dosage: 300 MG, QMO
     Route: 058
  4. HUMIRA [Suspect]
     Active Substance: ADALIMUMAB
     Indication: PSORIASIS
  5. ELIQUIS [Concomitant]
     Active Substance: APIXABAN
     Indication: PRODUCT USED FOR UNKNOWN INDICATION
     Dosage: UNK
     Route: 065
  6. RISANKIZUMAB [Suspect]
     Active Substance: RISANKIZUMAB
     Indication: PSORIASIS
     Dosage: 150 MG (1 IN 12 WEEKS)
     Route: 058
     Dates: start: 201911
  7. HUMIRA [Suspect]
     Active Substance: ADALIMUMAB
     Indication: COLITIS ULCERATIVE
     Dosage: UNK, BIW
     Route: 058
     Dates: start: 201705, end: 201908

REACTIONS (10)
  - Basal cell carcinoma [Not Recovered/Not Resolved]
  - Carpal tunnel syndrome [Unknown]
  - Therapeutic product effect incomplete [Recovered/Resolved]
  - Hypersensitivity [Unknown]
  - Unevaluable event [Recovered/Resolved]
  - Diarrhoea haemorrhagic [Unknown]
  - Condition aggravated [Recovered/Resolved]
  - Squamous cell carcinoma [Recovered/Resolved]
  - Irritable bowel syndrome [Unknown]
  - Drug ineffective [Recovered/Resolved]

NARRATIVE: CASE EVENT DATE: 2018
